FAERS Safety Report 7501782-2 (Version None)
Quarter: 2011Q2

REPORT INFORMATION
  Report Type: 
  Country: None (occurrence: None)
  Receive Date: 20110523
  Receipt Date: 20110523
  Transmission Date: 20111010
  Serious: Yes (Other)
  Sender: FDA-Public Use
  Company Number: None

PATIENT
  Age: 55 Year
  Sex: Female
  Weight: 72.5755 kg

DRUGS (1)
  1. BONIVA [Suspect]
     Dosage: 1 PILL MONTHLY PO
     Route: 048

REACTIONS (6)
  - FEELING ABNORMAL [None]
  - BONE PAIN [None]
  - NO THERAPEUTIC RESPONSE [None]
  - ABASIA [None]
  - MUSCLE SPASMS [None]
  - ARTHRITIS [None]
